FAERS Safety Report 24150549 (Version 1)
Quarter: 2024Q3

REPORT INFORMATION
  Report Type: Report from Study
  Country: US (occurrence: US)
  Receive Date: 20240730
  Receipt Date: 20240730
  Transmission Date: 20241016
  Serious: Yes (Other)
  Sender: ABBVIE
  Company Number: US-ABBVIE-5619370

PATIENT
  Age: 26 Year
  Sex: Male

DRUGS (3)
  1. SKYRIZI [Suspect]
     Active Substance: RISANKIZUMAB-RZAA
     Indication: Psoriasis
     Dosage: STRENGTH 150 MG, STOP DATE 2023
     Route: 058
     Dates: start: 202311
  2. SKYRIZI [Suspect]
     Active Substance: RISANKIZUMAB-RZAA
     Dosage: FIRST DOSE, STRENGTH 150 MG, STOP DATE 2023
     Route: 058
     Dates: start: 20231114
  3. SKYRIZI [Suspect]
     Active Substance: RISANKIZUMAB-RZAA
     Dosage: STRENGTH 150 MG
     Route: 058
     Dates: start: 202312

REACTIONS (9)
  - Tooth disorder [Recovered/Resolved]
  - Peripheral swelling [Recovering/Resolving]
  - Food interaction [Recovering/Resolving]
  - Rash [Recovered/Resolved]
  - Feeling abnormal [Unknown]
  - Heart rate increased [Recovering/Resolving]
  - Cold sweat [Unknown]
  - Erythema [Recovering/Resolving]
  - Nervousness [Unknown]

NARRATIVE: CASE EVENT DATE: 20240101
